FAERS Safety Report 5683517-1 (Version None)
Quarter: 2008Q1

REPORT INFORMATION
  Report Type: 
  Country: None (occurrence: None)
  Receive Date: 20080326
  Receipt Date: 20061013
  Transmission Date: 20080703
  Serious: Yes (Hospitalization)
  Sender: FDA-Public Use
  Company Number: 2008PL000034

PATIENT
  Age: 10 Year
  Sex: Female
  Weight: 31 kg

DRUGS (10)
  1. IMURAN [Suspect]
     Indication: COLITIS ULCERATIVE
     Dosage: 59 MG; 25 MG; QD
     Dates: start: 20060901, end: 20060928
  2. IMURAN [Suspect]
     Indication: COLITIS ULCERATIVE
     Dosage: 59 MG; 25 MG; QD
     Dates: start: 20060929
  3. REMICADE [Suspect]
     Indication: COLITIS ULCERATIVE
     Dosage: IV
     Route: 042
     Dates: start: 20060901
  4. ASACOL [Suspect]
     Indication: COLITIS ULCERATIVE
     Dosage: 800 MG; TID; 400 MG; TID
     Dates: start: 20060301, end: 20060801
  5. ASACOL [Suspect]
     Indication: COLITIS ULCERATIVE
     Dosage: 800 MG; TID; 400 MG; TID
     Dates: start: 20060924
  6. CALCIUM WITH VITAMIN D AND IRON [Concomitant]
  7. PREDNISONE [Concomitant]
  8. FLAGYL [Concomitant]
  9. IRON [Concomitant]
  10. GUMMY VITAMINS [Concomitant]

REACTIONS (24)
  - ALANINE AMINOTRANSFERASE INCREASED [None]
  - ANAEMIA [None]
  - ANOREXIA [None]
  - ATELECTASIS [None]
  - BLOOD ALBUMIN DECREASED [None]
  - BLOOD ALKALINE PHOSPHATASE INCREASED [None]
  - CHEST PAIN [None]
  - DEHYDRATION [None]
  - DYSPNOEA [None]
  - FATIGUE [None]
  - GASTRITIS [None]
  - LARGE INTESTINAL ULCER [None]
  - LOBAR PNEUMONIA [None]
  - MYCOPLASMA INFECTION [None]
  - OESOPHAGITIS [None]
  - PERICARDIAL EFFUSION [None]
  - PLATELET COUNT DECREASED [None]
  - PLATELET COUNT INCREASED [None]
  - PLEURAL EFFUSION [None]
  - PNEUMONIA [None]
  - PROTEIN TOTAL DECREASED [None]
  - PYREXIA [None]
  - RECTAL HAEMORRHAGE [None]
  - WEIGHT DECREASED [None]
